FAERS Safety Report 8807452 (Version 2)
Quarter: 2012Q4

REPORT INFORMATION
  Report Type: 
  Country: US (occurrence: US)
  Receive Date: 20120925
  Receipt Date: 20121026
  Transmission Date: 20130627
  Serious: No
  Sender: FDA-Public Use
  Company Number: US-ASTRAZENECA-2012SE72129

PATIENT
  Age: 40 Year
  Sex: Male
  Weight: 86.2 kg

DRUGS (2)
  1. SYMBICORT PMDI [Suspect]
     Dosage: 160/4.5 MCG TWO TIMES A DAY
     Route: 055
     Dates: start: 20110329
  2. SYMBICORT PMDI [Suspect]
     Dosage: 1PUFF BID
     Route: 055

REACTIONS (2)
  - Treatment noncompliance [Unknown]
  - Off label use [Unknown]
